FAERS Safety Report 7888596-9 (Version None)
Quarter: 2011Q4

REPORT INFORMATION
  Report Type: 
  Country: None (occurrence: None)
  Receive Date: 20111103
  Receipt Date: 20111027
  Transmission Date: 20120403
  Serious: No
  Sender: FDA-Public Use
  Company Number: US-PFIZER INC-2011264053

PATIENT
  Sex: Female

DRUGS (4)
  1. LYRICA [Suspect]
     Dosage: 100 MG, UNK
  2. CYMBALTA [Suspect]
     Dosage: UNK
  3. LYRICA [Suspect]
     Dosage: 50 MG, 2X/DAY
  4. LYRICA [Suspect]
     Dosage: 75 MG, 2X/DAY

REACTIONS (3)
  - FEELING ABNORMAL [None]
  - DRUG INEFFECTIVE [None]
  - ANXIETY [None]
